FAERS Safety Report 4776918-7 (Version None)
Quarter: 2005Q3

REPORT INFORMATION
  Report Type: 
  Country: None (occurrence: None)
  Receive Date: 20050921
  Receipt Date: 20050907
  Transmission Date: 20060218
  Serious: Yes (Other)
  Sender: FDA-Public Use
  Company Number: B0392986A

PATIENT
  Age: 35 Year
  Sex: Female

DRUGS (3)
  1. ZIAGEN [Suspect]
     Indication: HIV INFECTION
  2. TENOFOVIR (TENOFOVIR) [Suspect]
     Indication: HIV INFECTION
  3. LOPINAVIR + RITONAVIR (LOPINAVIR + RITONAVIR) [Suspect]
     Indication: HIV INFECTION

REACTIONS (3)
  - CYTOMEGALOVIRUS CHORIORETINITIS [None]
  - DISEASE RECURRENCE [None]
  - INFLAMMATION [None]
